FAERS Safety Report 4566011-0 (Version None)
Quarter: 2005Q1

REPORT INFORMATION
  Report Type: 
  Country: None (occurrence: None)
  Receive Date: 20050128
  Receipt Date: 20050121
  Transmission Date: 20050727
  Serious: Yes (Hospitalization)
  Sender: FDA-Public Use
  Company Number: 2005-01-1364

PATIENT
  Age: 60 Year
  Sex: Male

DRUGS (1)
  1. VIRAFERONPEG [Suspect]
     Indication: HEPATITIS
     Dosage: 90 UG SUBCUTANEOUS
     Route: 058
     Dates: start: 20041013

REACTIONS (3)
  - HAEMATOMA INFECTION [None]
  - INJECTION SITE HAEMORRHAGE [None]
  - PYREXIA [None]
